FAERS Safety Report 7687406-2 (Version None)
Quarter: 2011Q3

REPORT INFORMATION
  Report Type: 
  Country: None (occurrence: None)
  Receive Date: 20110816
  Receipt Date: 20110810
  Transmission Date: 20111222
  Serious: Yes (Hospitalization)
  Sender: FDA-Public Use
  Company Number: US-AMGEN-USASP2011026202

PATIENT
  Age: 35 Year
  Sex: Female

DRUGS (3)
  1. TOPAMAX [Concomitant]
  2. LYRICA [Concomitant]
  3. ENBREL [Suspect]
     Indication: ANKYLOSING SPONDYLITIS
     Dosage: 50 MG, QWK
     Route: 058
     Dates: start: 20090819, end: 20100501

REACTIONS (6)
  - JOINT DISLOCATION [None]
  - PAIN [None]
  - LABOUR INDUCTION [None]
  - MIGRAINE [None]
  - ANKYLOSING SPONDYLITIS [None]
  - ACTIVITIES OF DAILY LIVING IMPAIRED [None]
